FAERS Safety Report 20123051 (Version 1)
Quarter: 2021Q4

REPORT INFORMATION
  Report Type: Spontaneous
  Country: US (occurrence: US)
  Receive Date: 20211129
  Receipt Date: 20211129
  Transmission Date: 20220304
  Serious: Yes (Hospitalization)
  Sender: FDA-Public Use
  Company Number: US-JNJFOC-20211138877

PATIENT
  Age: 40 Year
  Sex: Male
  Weight: 71 kg

DRUGS (3)
  1. TYLENOL EXTRA STRENGTH [Suspect]
     Active Substance: ACETAMINOPHEN
     Indication: Product used for unknown indication
     Dosage: TOOK FOUR (4) TYLENOL ES (ACETAMINOPHEN 500 MG) TABLETS (TOTAL ACETAMINOPHEN 2000 MG FOR ONE DAY)
     Route: 048
     Dates: start: 20010116, end: 20010116
  2. ACETAMINOPHEN\CODEINE PHOSPHATE [Suspect]
     Active Substance: ACETAMINOPHEN\CODEINE PHOSPHATE
     Indication: Product used for unknown indication
     Dosage: (ACETAMINOPHEN 500 MG AND CODEINE PHOSPHATE UNKNOWN MG) DAILY FOR 3 MONTHS
     Route: 048
     Dates: end: 20010116
  3. XANAX [Concomitant]
     Active Substance: ALPRAZOLAM
     Indication: Product used for unknown indication
     Dosage: 2 MG, DAILY FOR 4 MONTHS
     Route: 065
     Dates: end: 20010116

REACTIONS (4)
  - Acute hepatic failure [Unknown]
  - Acute kidney injury [Unknown]
  - Product administration error [Unknown]
  - Accidental overdose [Unknown]
